FAERS Safety Report 8828636 (Version 2)
Quarter: 2012Q4

REPORT INFORMATION
  Report Type: 
  Country: GB (occurrence: GB)
  Receive Date: 20121005
  Receipt Date: 20121024
  Transmission Date: 20130627
  Serious: Yes (Hospitalization)
  Sender: FDA-Public Use
  Company Number: GB-TEVA-360594ISR

PATIENT
  Age: 80 Year

DRUGS (12)
  1. AMITRIPTYLINE [Suspect]
     Dosage: At night. The dose of amitriptyline was reduced on admission from 30mg to 10mg
     Route: 048
     Dates: start: 20120903
  2. AMITRIPTYLINE [Suspect]
     Dosage: At night. The dose of amitriptyline was reduced on admission from 30mg to 10mg
     Route: 048
  3. PERINDOPRIL ERBUMINE [Suspect]
     Dosage: in the morning.
     Route: 048
     Dates: end: 20120903
  4. ASPIRIN [Concomitant]
     Dosage: in the morning
     Route: 048
  5. GLICLAZIDE [Concomitant]
     Dosage: in the morning
     Route: 048
  6. LATANOPROST [Concomitant]
     Dosage: 50micrograms/ml . 1 drop at night both.
     Route: 050
  7. MACROGOL [Concomitant]
     Dosage: compound oral powder 13.9g sachets
     Route: 048
  8. METFORMIN [Concomitant]
     Route: 048
  9. RANITIDINE [Concomitant]
     Route: 048
  10. SOLIFENACIN [Concomitant]
     Dosage: in the morning
     Route: 048
  11. VILDAGLIPTIN [Concomitant]
     Dosage: in the morning
     Route: 048
  12. PARACETAMOL [Concomitant]
     Dosage: 1GRAM four times a day when required.
     Route: 048

REACTIONS (1)
  - Hyponatraemia [Recovering/Resolving]
